FAERS Safety Report 8996162 (Version 1)
Quarter: 2013Q1

REPORT INFORMATION
  Report Type: Spontaneous
  Country: FR (occurrence: FR)
  Receive Date: 20130103
  Receipt Date: 20130103
  Transmission Date: 20140127
  Serious: Yes (Other)
  Sender: FDA-Public Use
  Company Number: PHHY2013FR000996

PATIENT
  Age: 15 Year
  Sex: Female

DRUGS (4)
  1. METHYLPREDNISOLONE [Suspect]
     Indication: INTERSTITIAL LUNG DISEASE
     Route: 042
  2. METHOTREXATE [Suspect]
     Indication: INTERSTITIAL LUNG DISEASE
  3. MYCOPHENOLATE MOFETIL [Suspect]
     Indication: INTERSTITIAL LUNG DISEASE
  4. HYDROXYCHLOROQUINE [Suspect]

REACTIONS (1)
  - Osteomyelitis [Unknown]
